FAERS Safety Report 25658953 (Version 1)
Quarter: 2025Q3

REPORT INFORMATION
  Report Type: Other
  Country: US (occurrence: US)
  Receive Date: 20250808
  Receipt Date: 20250808
  Transmission Date: 20251021
  Serious: Yes (Other)
  Sender: THE ACME LABORATORIES LTD
  Company Number: US-The ACME Laboratories Ltd-2182098

PATIENT
  Age: 78 Year
  Sex: Male

DRUGS (6)
  1. ZOLPIDEM TARTRATE [Suspect]
     Active Substance: ZOLPIDEM TARTRATE
     Indication: Catatonia
  2. METHYLPREDNISOLONE [Concomitant]
     Active Substance: METHYLPREDNISOLONE
  3. LORAZEPAM [Concomitant]
     Active Substance: LORAZEPAM
  4. AMANTADINE. [Concomitant]
     Active Substance: AMANTADINE HYDROCHLORIDE
  5. METHYLPHENIDATE [Concomitant]
     Active Substance: METHYLPHENIDATE
  6. MEMANTINE [Concomitant]
     Active Substance: MEMANTINE

REACTIONS (2)
  - Delirium [Unknown]
  - Product use in unapproved indication [Unknown]
